FAERS Safety Report 7688781-5 (Version None)
Quarter: 2011Q3

REPORT INFORMATION
  Report Type: 
  Country: None (occurrence: None)
  Receive Date: 20110817
  Receipt Date: 20110811
  Transmission Date: 20111222
  Serious: Yes (Hospitalization)
  Sender: FDA-Public Use
  Company Number: US-AMGEN-USASP2011041116

PATIENT
  Age: 50 Year
  Sex: Male

DRUGS (2)
  1. NEULASTA [Suspect]
     Indication: TRANSPLANT
     Dosage: UNK UNK, ONE TIME DOSE
     Route: 058
     Dates: start: 20110423, end: 20110423
  2. NEUPOGEN [Suspect]
     Indication: MULTIPLE MYELOMA
     Dosage: 2100 A?G, QD
     Route: 058
     Dates: start: 20110312, end: 20110406

REACTIONS (2)
  - ATRIAL FIBRILLATION [None]
  - TRANSPLANT [None]
